FAERS Safety Report 24985693 (Version 2)
Quarter: 2025Q1

REPORT INFORMATION
  Report Type: Report from Study
  Country: US (occurrence: US)
  Receive Date: 20250219
  Receipt Date: 20250305
  Transmission Date: 20250408
  Serious: Yes (Other)
  Sender: NOVARTIS
  Company Number: US-002147023-NVSC2025US025685

PATIENT
  Age: 37 Year
  Sex: Female
  Weight: 140 kg

DRUGS (1)
  1. FABHALTA [Suspect]
     Active Substance: IPTACOPAN HYDROCHLORIDE
     Indication: IgA nephropathy
     Dosage: 200 MG, BID
     Route: 048
     Dates: start: 20250117, end: 20250212

REACTIONS (8)
  - Eye swelling [Unknown]
  - Eye pruritus [Unknown]
  - Urticaria [Unknown]
  - Eye disorder [Unknown]
  - Fatigue [Unknown]
  - Ocular hyperaemia [Unknown]
  - Swelling of eyelid [Recovering/Resolving]
  - Skin discolouration [Not Recovered/Not Resolved]

NARRATIVE: CASE EVENT DATE: 20250202
